FAERS Safety Report 16570116 (Version 1)
Quarter: 2019Q3

REPORT INFORMATION
  Report Type: Spontaneous
  Country: US (occurrence: US)
  Receive Date: 20190715
  Receipt Date: 20190715
  Transmission Date: 20191004
  Serious: No
  Sender: FDA-Public Use
  Company Number: US-JNJFOC-20190715155

PATIENT
  Age: 49 Year
  Sex: Female
  Weight: 85.81 kg

DRUGS (1)
  1. MENS ROGAINE EXTRA STRENGTH [Suspect]
     Active Substance: MINOXIDIL
     Indication: ALOPECIA
     Dosage: PER DIRECTIONS - HALF A CAP FULL TWICE DAILY
     Route: 061
     Dates: start: 20190601

REACTIONS (4)
  - Product use issue [Unknown]
  - Contraindicated product administered [Unknown]
  - Intentional product misuse [Unknown]
  - Overdose [Unknown]

NARRATIVE: CASE EVENT DATE: 20190601
